FAERS Safety Report 8227346-3 (Version None)
Quarter: 2012Q1

REPORT INFORMATION
  Report Type: 
  Country: None (occurrence: None)
  Receive Date: 20120322
  Receipt Date: 20120308
  Transmission Date: 20120608
  Serious: Yes (Other)
  Sender: FDA-Public Use
  Company Number: ES-MYLANLABS-2012S1006043

PATIENT
  Sex: Male

DRUGS (1)
  1. CYSTAGON [Suspect]
     Indication: CYSTINOSIS
     Dosage: 150MG
     Route: 048

REACTIONS (2)
  - PSYCHOTIC DISORDER [None]
  - PRE-EXISTING DISEASE [None]
